FAERS Safety Report 26110477 (Version 1)
Quarter: 2025Q4

REPORT INFORMATION
  Report Type: Spontaneous
  Country: TW (occurrence: TW)
  Receive Date: 20251202
  Receipt Date: 20251202
  Transmission Date: 20260118
  Serious: Yes (Other)
  Sender: ALEXION PHARMACEUTICALS
  Company Number: TW-AstraZeneca-CH-01002927A

PATIENT
  Age: 78 Year
  Sex: Male

DRUGS (3)
  1. TAGRISSO [Suspect]
     Active Substance: OSIMERTINIB
     Indication: Lung adenocarcinoma
     Dosage: 80 MILLIGRAM, QD
     Route: 065
  2. CARBOPLATIN [Concomitant]
     Active Substance: CARBOPLATIN
     Dosage: 350 MILLIGRAM
  3. PEMETREXED [Concomitant]
     Active Substance: PEMETREXED
     Dosage: 600 MILLIGRAM

REACTIONS (7)
  - Pneumonitis [Recovered/Resolved]
  - Dyspnoea exertional [Recovered/Resolved]
  - Palpitations [Recovered/Resolved]
  - Hypotension [Unknown]
  - Ventricular tachycardia [Unknown]
  - Coronary artery disease [Unknown]
  - Ventricular fibrillation [Recovered/Resolved]
